FAERS Safety Report 13336963 (Version 4)
Quarter: 2017Q2

REPORT INFORMATION
  Report Type: Spontaneous
  Country: US (occurrence: US)
  Receive Date: 20170314
  Receipt Date: 20170412
  Transmission Date: 20170830
  Serious: Yes (Hospitalization)
  Sender: FDA-Public Use
  Company Number: US-009507513-1703USA005259

PATIENT
  Age: 79 Year
  Sex: Female
  Weight: 50 kg

DRUGS (1)
  1. KEYTRUDA [Suspect]
     Active Substance: PEMBROLIZUMAB
     Indication: SQUAMOUS CELL CARCINOMA OF THE ORAL CAVITY
     Dosage: 200 MG, ONE TIME
     Route: 041
     Dates: start: 20160921, end: 20160921

REACTIONS (3)
  - Nausea [Unknown]
  - Vomiting [Unknown]
  - Fulminant type 1 diabetes mellitus [Unknown]

NARRATIVE: CASE EVENT DATE: 20161011
